FAERS Safety Report 8507581-7 (Version None)
Quarter: 2012Q3

REPORT INFORMATION
  Report Type: 
  Country: None (occurrence: None)
  Receive Date: 20120713
  Receipt Date: 20120702
  Transmission Date: 20120928
  Serious: Yes (Hospitalization)
  Sender: FDA-Public Use
  Company Number: US-BIOGENIDEC-2012BI023520

PATIENT
  Age: 36 Year
  Sex: Male

DRUGS (1)
  1. AVONEX [Suspect]
     Indication: MULTIPLE SCLEROSIS
     Route: 030
     Dates: start: 20090710

REACTIONS (7)
  - PULMONARY OEDEMA [None]
  - PALPITATIONS [None]
  - DIARRHOEA [None]
  - DRUG DOSE OMISSION [None]
  - VOMITING [None]
  - BODY TEMPERATURE [None]
  - DEHYDRATION [None]
